FAERS Safety Report 25283080 (Version 1)
Quarter: 2025Q2

REPORT INFORMATION
  Report Type: Spontaneous
  Country: US (occurrence: None)
  Receive Date: 20250507
  Receipt Date: 20250507
  Transmission Date: 20250717
  Serious: Yes (Disabling)
  Sender: FDA-CTU
  Company Number: None

PATIENT
  Sex: Female
  Weight: 67.5 kg

DRUGS (8)
  1. ESTRADIOL [Suspect]
     Active Substance: ESTRADIOL
     Indication: Pelvic floor muscle weakness
     Route: 067
     Dates: start: 20250306, end: 20250413
  2. Rumilo Rosacea Cream(azelaic acid 15%)(niacinamide 4%) [Concomitant]
  3. Aveidaoxia Gel (ivermectin 1%) (metronidazole 1%) (niacinamide 4%) [Concomitant]
  4. VITAMIN D3 [Concomitant]
     Active Substance: CHOLECALCIFEROL
  5. DIETARY SUPPLEMENT [Concomitant]
     Active Substance: DIETARY SUPPLEMENT
  6. New Chapter Women^s 55+ multivitamin [Concomitant]
  7. LUTEIN [Concomitant]
     Active Substance: LUTEIN
  8. ZEAXANTHIN [Concomitant]
     Active Substance: ZEAXANTHIN

REACTIONS (11)
  - Endocrine ophthalmopathy [None]
  - Abdominal discomfort [None]
  - Headache [None]
  - Brain fog [None]
  - Pelvic pain [None]
  - Arthralgia [None]
  - Back pain [None]
  - Vulvovaginal discomfort [None]
  - Muscular weakness [None]
  - Abdominal distension [None]
  - Fatigue [None]
